FAERS Safety Report 4396242-4 (Version None)
Quarter: 2004Q3

REPORT INFORMATION
  Report Type: 
  Country: None (occurrence: None)
  Receive Date: 20040713
  Receipt Date: 20040705
  Transmission Date: 20050211
  Serious: Yes (Hospitalization)
  Sender: FDA-Public Use
  Company Number: PHFR2004GB02735

PATIENT

DRUGS (1)
  1. DIOVAN [Suspect]

REACTIONS (1)
  - CHOLELITHIASIS [None]
